FAERS Safety Report 18598766 (Version 2)
Quarter: 2021Q3

REPORT INFORMATION
  Report Type: Other
  Country: FR (occurrence: FR)
  Receive Date: 20201210
  Receipt Date: 20210829
  Transmission Date: 20211014
  Serious: Yes (Other)
  Sender: FDA-Public Use
  Company Number: FR-ROCHE-2725677

PATIENT

DRUGS (3)
  1. TOCILIZUMAB. [Suspect]
     Active Substance: TOCILIZUMAB
     Indication: POLYMYALGIA RHEUMATICA
     Route: 042
  2. METHOTREXATE. [Concomitant]
     Active Substance: METHOTREXATE
  3. TOCILIZUMAB. [Suspect]
     Active Substance: TOCILIZUMAB
     Indication: POLYMYALGIA RHEUMATICA
     Route: 058

REACTIONS (7)
  - Cutaneous lymphoma [Unknown]
  - Infection [Unknown]
  - Myocardial infarction [Unknown]
  - Intentional product use issue [Unknown]
  - Cytopenia [Unknown]
  - Off label use [Unknown]
  - Laboratory test abnormal [Unknown]
